FAERS Safety Report 6280756-6 (Version None)
Quarter: 2009Q3

REPORT INFORMATION
  Report Type: 
  Country: None (occurrence: None)
  Receive Date: 20090724
  Receipt Date: 20090116
  Transmission Date: 20100115
  Serious: Yes (Other)
  Sender: FDA-Public Use
  Company Number: A0764188A

PATIENT
  Sex: Male

DRUGS (21)
  1. AVANDIA [Suspect]
     Dosage: 8MG PER DAY
     Route: 048
     Dates: start: 19980101, end: 20060321
  2. ATENOL [Concomitant]
  3. PAXIL [Concomitant]
  4. METFORMIN HCL [Concomitant]
  5. ZOCOR [Concomitant]
  6. FUROSEMIDE [Concomitant]
  7. GLIPIZID [Concomitant]
  8. TRICOR [Concomitant]
  9. LISINOPRIL [Concomitant]
  10. ZOLOFT [Concomitant]
  11. NORVASC [Concomitant]
  12. FLOMAX [Concomitant]
  13. TYLENOL [Concomitant]
  14. PLAVIX [Concomitant]
  15. FELDENE [Concomitant]
  16. FLEXERIL [Concomitant]
  17. VOLTAREN [Concomitant]
  18. INSULIN [Concomitant]
  19. METOLAZONE [Concomitant]
  20. COREG [Concomitant]
  21. ZETIA [Concomitant]

REACTIONS (1)
  - CARDIAC FAILURE CONGESTIVE [None]
